FAERS Safety Report 6193800-1 (Version None)
Quarter: 2009Q2

REPORT INFORMATION
  Report Type: 
  Country: None (occurrence: None)
  Receive Date: 20090514
  Receipt Date: 20090507
  Transmission Date: 20091009
  Serious: Yes (Other)
  Sender: FDA-Public Use
  Company Number: 2009SP009764

PATIENT
  Sex: Female

DRUGS (2)
  1. INTRON A [Suspect]
     Indication: HEPATITIS C
  2. RIBARIRIN [Suspect]
     Indication: HEPATITIS C

REACTIONS (3)
  - BIPOLAR DISORDER [None]
  - MENTAL DISORDER [None]
  - UNEVALUABLE EVENT [None]
